FAERS Safety Report 18766225 (Version 2)
Quarter: 2021Q1

REPORT INFORMATION
  Report Type: Spontaneous
  Country: CA (occurrence: CA)
  Receive Date: 20210120
  Receipt Date: 20210120
  Transmission Date: 20210419
  Serious: Yes (Hospitalization, Other)
  Sender: FDA-Public Use
  Company Number: CA-B.I. PHARMACEUTICALS,INC./RIDGEFIELD-2021-BI-076550

PATIENT
  Age: 50 Year
  Sex: Female

DRUGS (41)
  1. AMITRIPTYLINE HYDROCHLORIDE. [Suspect]
     Active Substance: AMITRIPTYLINE HYDROCHLORIDE
     Indication: COMPLEX REGIONAL PAIN SYNDROME
  2. CIMETIDINE [Suspect]
     Active Substance: CIMETIDINE
     Indication: COMPLEX REGIONAL PAIN SYNDROME
  3. CATAPRES [Suspect]
     Active Substance: CLONIDINE HYDROCHLORIDE
     Indication: COMPLEX REGIONAL PAIN SYNDROME
  4. DILTIAZEM HYDROCHLORIDE. [Suspect]
     Active Substance: DILTIAZEM HYDROCHLORIDE
     Indication: COMPLEX REGIONAL PAIN SYNDROME
  5. HYDROXYCHLOROQUINE SULFATE. [Suspect]
     Active Substance: HYDROXYCHLOROQUINE SULFATE
     Indication: COMPLEX REGIONAL PAIN SYNDROME
  6. KETAMINE [Suspect]
     Active Substance: KETAMINE
     Route: 048
  7. KETAMINE [Suspect]
     Active Substance: KETAMINE
     Route: 061
  8. PALMIDROL [Suspect]
     Active Substance: PALMIDROL
     Indication: COMPLEX REGIONAL PAIN SYNDROME
  9. APREMILAST [Suspect]
     Active Substance: APREMILAST
     Indication: COMPLEX REGIONAL PAIN SYNDROME
  10. CALCITONIN [Concomitant]
     Active Substance: CALCITONIN
     Indication: PRODUCT USED FOR UNKNOWN INDICATION
  11. CAPSAICIN. [Suspect]
     Active Substance: CAPSAICIN
     Indication: COMPLEX REGIONAL PAIN SYNDROME
     Route: 061
  12. MEXITIL [Suspect]
     Active Substance: MEXILETINE HYDROCHLORIDE
     Indication: COMPLEX REGIONAL PAIN SYNDROME
     Dosage: FORMULATION: OINTMENT TOPICAL
  13. MYCOPHENOLATE MOFETIL. [Suspect]
     Active Substance: MYCOPHENOLATE MOFETIL
     Indication: COMPLEX REGIONAL PAIN SYNDROME
  14. VITAMIN B2 [Suspect]
     Active Substance: RIBOFLAVIN
     Indication: COMPLEX REGIONAL PAIN SYNDROME
  15. NALTREXONE HYDROCHLORIDE. [Suspect]
     Active Substance: NALTREXONE HYDROCHLORIDE
     Indication: COMPLEX REGIONAL PAIN SYNDROME
  16. PREDNISONE. [Suspect]
     Active Substance: PREDNISONE
     Indication: COMPLEX REGIONAL PAIN SYNDROME
  17. PREDNISONE. [Suspect]
     Active Substance: PREDNISONE
  18. PREGABALIN. [Suspect]
     Active Substance: PREGABALIN
     Indication: COMPLEX REGIONAL PAIN SYNDROME
  19. ERELZI [Suspect]
     Active Substance: ETANERCEPT-SZZS
     Indication: COMPLEX REGIONAL PAIN SYNDROME
  20. MAGNESIUM GLUCONATE [Suspect]
     Active Substance: MAGNESIUM GLUCONATE
     Indication: COMPLEX REGIONAL PAIN SYNDROME
  21. MAGNESIUM GLUCONATE [Suspect]
     Active Substance: MAGNESIUM GLUCONATE
     Indication: MIGRAINE PROPHYLAXIS
  22. MEMANTINE HYDROCHLORIDE. [Suspect]
     Active Substance: MEMANTINE HYDROCHLORIDE
     Indication: COMPLEX REGIONAL PAIN SYNDROME
  23. METOPROLOL. [Suspect]
     Active Substance: METOPROLOL
     Indication: COMPLEX REGIONAL PAIN SYNDROME
  24. MONTELUKAST [Suspect]
     Active Substance: MONTELUKAST SODIUM
     Indication: COMPLEX REGIONAL PAIN SYNDROME
  25. VITAMIN B2 [Suspect]
     Active Substance: RIBOFLAVIN
     Indication: MIGRAINE PROPHYLAXIS
  26. EZETIMIBE. [Concomitant]
     Active Substance: EZETIMIBE
     Indication: PRODUCT USED FOR UNKNOWN INDICATION
  27. AMLODIPINE BESILATE [Suspect]
     Active Substance: AMLODIPINE BESYLATE
     Indication: COMPLEX REGIONAL PAIN SYNDROME
  28. BUMETANIDE. [Suspect]
     Active Substance: BUMETANIDE
     Indication: COMPLEX REGIONAL PAIN SYNDROME
  29. LITHIUM CARBONATE. [Suspect]
     Active Substance: LITHIUM CARBONATE
     Indication: COMPLEX REGIONAL PAIN SYNDROME
  30. PENTOXIFYLLINE. [Suspect]
     Active Substance: PENTOXIFYLLINE
     Indication: COMPLEX REGIONAL PAIN SYNDROME
  31. SPIRONOLACTONE. [Suspect]
     Active Substance: SPIRONOLACTONE
     Indication: COMPLEX REGIONAL PAIN SYNDROME
  32. LIDOCAINE. [Suspect]
     Active Substance: LIDOCAINE
     Indication: COMPLEX REGIONAL PAIN SYNDROME
     Dosage: FORMULATION: OINTMENT TOPICAL
     Route: 042
  33. LIDOCAINE. [Suspect]
     Active Substance: LIDOCAINE
     Route: 061
  34. ANAKINRA [Suspect]
     Active Substance: ANAKINRA
     Indication: COMPLEX REGIONAL PAIN SYNDROME
  35. IBUDILAST [Suspect]
     Active Substance: IBUDILAST
     Indication: COMPLEX REGIONAL PAIN SYNDROME
  36. KETAMINE [Suspect]
     Active Substance: KETAMINE
     Indication: COMPLEX REGIONAL PAIN SYNDROME
     Route: 042
  37. N?ACETYLCYSTEINE [Suspect]
     Active Substance: ACETYLCYSTEINE
     Indication: COMPLEX REGIONAL PAIN SYNDROME
  38. PREDNISONE. [Suspect]
     Active Substance: PREDNISONE
  39. PREDNISONE. [Suspect]
     Active Substance: PREDNISONE
  40. VITAMIN C [Suspect]
     Active Substance: ASCORBIC ACID
     Indication: COMPLEX REGIONAL PAIN SYNDROME
  41. TRAZODONE [Concomitant]
     Active Substance: TRAZODONE HYDROCHLORIDE
     Indication: PRODUCT USED FOR UNKNOWN INDICATION

REACTIONS (21)
  - Infection susceptibility increased [Recovered/Resolved]
  - Weight increased [Recovered/Resolved]
  - Cellulitis [Recovered/Resolved]
  - Fatigue [Recovered/Resolved]
  - Glucose tolerance impaired [Recovered/Resolved]
  - Contusion [Recovered/Resolved]
  - Hyperlipidaemia [Recovered/Resolved]
  - Inhibitory drug interaction [Recovered/Resolved]
  - Bone density decreased [Recovered/Resolved]
  - Purpura [Recovered/Resolved]
  - Skin disorder [Recovered/Resolved]
  - Poor quality sleep [Recovered/Resolved]
  - Insomnia [Recovered/Resolved]
  - Body tinea [Recovered/Resolved]
  - Cataract [Recovered/Resolved]
  - Impaired quality of life [Recovered/Resolved]
  - Hypertension [Recovered/Resolved]
  - Drug ineffective [Recovered/Resolved]
  - Herpes zoster [Recovered/Resolved]
  - Impaired work ability [Recovered/Resolved]
  - Oral herpes [Recovered/Resolved]
